FAERS Safety Report 9521238 (Version 3)
Quarter: 2013Q4

REPORT INFORMATION
  Report Type: Spontaneous
  Country: US (occurrence: US)
  Receive Date: 20130913
  Receipt Date: 20131001
  Transmission Date: 20140711
  Serious: Yes (Other)
  Sender: FDA-Public Use
  Company Number: US-JNJFOC-20130719138

PATIENT
  Sex: Male
  Weight: 96.5 kg

DRUGS (2)
  1. ZYTIGA [Suspect]
     Indication: PROSTATE CANCER
     Route: 048
     Dates: start: 20130730
  2. RADIATION THERAPY NOS [Suspect]
     Indication: PROSTATE CANCER
     Route: 065

REACTIONS (2)
  - Oesophagitis [Unknown]
  - Dysphagia [Unknown]
